FAERS Safety Report 10736621 (Version 1)
Quarter: 2015Q1

REPORT INFORMATION
  Report Type: Spontaneous
  Country: US (occurrence: None)
  Receive Date: 20150123
  Receipt Date: 20150123
  Transmission Date: 20150721
  Serious: Yes (Hospitalization)
  Sender: FDA-Public Use
  Company Number: None

PATIENT
  Age: 3 Year
  Sex: Male
  Weight: 15.2 kg

DRUGS (5)
  1. METHOTREXATE [Suspect]
     Active Substance: METHOTREXATE
     Dosage: 24 MG   INTRATECHA, 12 MG TWICE
     Dates: end: 20141222
  2. DEXAMETHASONE. [Suspect]
     Active Substance: DEXAMETHASONE
     Dosage: 112 MG 2 MG BID
     Dates: end: 20150114
  3. ONCASPAR [Suspect]
     Active Substance: PEGASPARGASE
     Dates: end: 20141225
  4. VINCRISTINE SULFATE. [Suspect]
     Active Substance: VINCRISTINE SULFATE
     Dates: end: 20150112
  5. CYTARABINE. [Suspect]
     Active Substance: CYTARABINE
     Dosage: 70 MG INTRATHECAL
     Dates: end: 20141222

REACTIONS (2)
  - Hydronephrosis [None]
  - Pyelocaliectasis [None]

NARRATIVE: CASE EVENT DATE: 20150114
